FAERS Safety Report 9090920 (Version 1)
Quarter: 2013Q1

REPORT INFORMATION
  Report Type: Report from Study
  Country: US (occurrence: US)
  Receive Date: 20130201
  Receipt Date: 20130201
  Transmission Date: 20140127
  Serious: No
  Sender: FDA-Public Use
  Company Number: US-ABBOTT-12P-163-1019566-00

PATIENT
  Age: 53 Year
  Sex: Male

DRUGS (3)
  1. HUMIRA [Suspect]
     Indication: PSORIASIS
     Dates: start: 20120501
  2. NAPROXEN [Concomitant]
     Indication: PAIN
     Dosage: TWICE A DAY
  3. LISINOPRIL [Concomitant]
     Indication: HYPERTENSION
     Dosage: HALF TABLET DAILY

REACTIONS (1)
  - Oropharyngeal pain [Not Recovered/Not Resolved]
